FAERS Safety Report 4871879-4 (Version None)
Quarter: 2006Q1

REPORT INFORMATION
  Report Type: 
  Country: None (occurrence: None)
  Receive Date: 20060104
  Receipt Date: 20051129
  Transmission Date: 20060701
  Serious: Yes (Hospitalization)
  Sender: FDA-Public Use
  Company Number: US-MERCK-0511USA04600

PATIENT
  Age: 83 Year
  Sex: Female
  Weight: 64 kg

DRUGS (7)
  1. VIOXX [Suspect]
     Indication: ARTHRALGIA
     Route: 048
     Dates: start: 20001227, end: 20010625
  2. VIOXX [Suspect]
     Indication: LOWER LIMB FRACTURE
     Route: 048
     Dates: start: 20001227, end: 20010625
  3. VERAPAMIL HYDROCHLORIDE [Concomitant]
     Route: 065
  4. COUMADIN [Concomitant]
     Route: 065
  5. LANOXIN [Concomitant]
     Route: 065
  6. PRILOSEC [Concomitant]
     Route: 065
  7. CEPHALEXIN [Concomitant]
     Route: 065

REACTIONS (3)
  - CARDIAC DISORDER [None]
  - CEREBROVASCULAR ACCIDENT [None]
  - TRANSIENT ISCHAEMIC ATTACK [None]
